FAERS Safety Report 6238866-5 (Version None)
Quarter: 2009Q2

REPORT INFORMATION
  Report Type: 
  Country: None (occurrence: None)
  Receive Date: 20090618
  Receipt Date: 20090611
  Transmission Date: 20091009
  Serious: Yes (Hospitalization, Other)
  Sender: FDA-Public Use
  Company Number: MSTR-NO-0906S-0114

PATIENT
  Age: 60 Year
  Sex: Female
  Weight: 41 kg

DRUGS (3)
  1. METASTRON [Suspect]
     Indication: METASTATIC PAIN
     Dosage: SINGLE DOSE, I.V.
     Route: 042
     Dates: start: 20080902, end: 20080902
  2. CARBOPLATIN [Concomitant]
  3. VINCRISTINE SULFATE (VNR) [Concomitant]

REACTIONS (6)
  - ANAEMIA [None]
  - CONDITION AGGRAVATED [None]
  - LUNG NEOPLASM MALIGNANT [None]
  - METASTASES TO LIVER [None]
  - PLATELET COUNT DECREASED [None]
  - WHITE BLOOD CELL COUNT DECREASED [None]
